FAERS Safety Report 19014951 (Version 1)
Quarter: 2021Q1

REPORT INFORMATION
  Report Type: Spontaneous
  Country: DE (occurrence: DE)
  Receive Date: 20210316
  Receipt Date: 20210316
  Transmission Date: 20210420
  Serious: Yes (Death, Hospitalization)
  Sender: FDA-Public Use
  Company Number: DE-TEVA-2021-DE-1890184

PATIENT
  Age: 82 Year
  Sex: Female

DRUGS (8)
  1. ACETYLSALICYLSAURE [Concomitant]
     Active Substance: ASPIRIN
     Dosage: 100 MILLIGRAM DAILY; 0?1?0?0,
     Route: 048
  2. RAMIPRIL. [Concomitant]
     Active Substance: RAMIPRIL
     Dosage: 2.5 MILLIGRAM DAILY;  1?0?0?0,
     Route: 048
  3. BISOPROLOL [Concomitant]
     Active Substance: BISOPROLOL
     Dosage: 5 MILLIGRAM DAILY;  1?0?1?0,
     Route: 048
  4. KOMBOGLYZE 2,5MG/1000MG [Suspect]
     Active Substance: METFORMIN HYDROCHLORIDE\SAXAGLIPTIN
     Dosage: 2 DOSAGE FORMS DAILY; 1000|2.5 MG, 1?0?1?0,
     Route: 048
  5. LEVETIRACETAM. [Suspect]
     Active Substance: LEVETIRACETAM
     Dosage: 3000 MILLIGRAM DAILY; 1?0?1?0,
     Route: 048
  6. INSULIN LISPRO/INSULIN LISPRO?ISOPHAN [Concomitant]
     Dosage: 8 DOSAGE FORMS DAILY; 8?0?0?0
     Route: 058
  7. NALOXON/TILIDIN [Concomitant]
     Active Substance: NALOXONE HYDROCHLORIDE\TILIDINE HYDROCHLORIDE
     Dosage: 3 DOSAGE FORMS DAILY; 4|50 MG, 1?1?1?0,
     Route: 048
  8. ENOXAPARIN [Concomitant]
     Active Substance: ENOXAPARIN
     Dosage: 4000 IU (INTERNATIONAL UNIT) DAILY; 1?0?0?0,
     Route: 048

REACTIONS (5)
  - Apnoea [Unknown]
  - Acute respiratory failure [Unknown]
  - General physical health deterioration [Unknown]
  - Condition aggravated [Unknown]
  - Aspiration [Unknown]
